FAERS Safety Report 26056630 (Version 1)
Quarter: 2025Q4

REPORT INFORMATION
  Report Type: Spontaneous
  Country: US (occurrence: US)
  Receive Date: 20251118
  Receipt Date: 20251118
  Transmission Date: 20260117
  Serious: No
  Sender: AMNEAL
  Company Number: US-AMNEAL PHARMACEUTICALS-2025-AMRX-00208

PATIENT
  Age: 19 Year
  Sex: Female

DRUGS (1)
  1. ISOTRETINOIN [Suspect]
     Active Substance: ISOTRETINOIN
     Indication: Product used for unknown indication
     Dosage: 30 MILLIGRAM
     Route: 065
     Dates: start: 20240819

REACTIONS (5)
  - Xerosis [Unknown]
  - Hypercholesterolaemia [Unknown]
  - Cheilitis [Unknown]
  - Hypertriglyceridaemia [Unknown]
  - Hot flush [Unknown]

NARRATIVE: CASE EVENT DATE: 20250109
